FAERS Safety Report 7875575-0 (Version None)
Quarter: 2011Q4

REPORT INFORMATION
  Report Type: 
  Country: None (occurrence: None)
  Receive Date: 20111031
  Receipt Date: 20111017
  Transmission Date: 20120403
  Serious: Yes (Hospitalization)
  Sender: FDA-Public Use
  Company Number: US-ELI_LILLY_AND_COMPANY-US201110000644

PATIENT
  Sex: Male

DRUGS (16)
  1. NEXIUM [Concomitant]
  2. SIMVASTATIN [Concomitant]
     Dosage: 20 MG, QD
  3. ASPIRIN [Concomitant]
  4. IMDUR [Concomitant]
  5. COUMADIN [Concomitant]
  6. IRON [Concomitant]
  7. QUININE SULFATE [Concomitant]
  8. LUTEIN [Concomitant]
     Indication: EYE DISORDER
  9. FORTEO [Suspect]
     Indication: OSTEOPOROSIS
     Dosage: 20 UG, QD
     Route: 065
  10. PRESERVISION LUTEIN EYE VITA.+MIN.SUP.SOFTG. [Concomitant]
     Indication: MACULAR DEGENERATION
     Dosage: UNK, BID
  11. VITAMIN D [Concomitant]
     Dosage: 1000 MG, UNK
  12. CARDIZEM [Concomitant]
     Dosage: 120 MG, QD
  13. PROSCAR [Concomitant]
  14. FORTEO [Suspect]
     Dosage: 20 UG, QD
     Route: 065
     Dates: start: 20111014
  15. CALCIUM W/VITAMIN D                /00188401/ [Concomitant]
     Dosage: UNK, BID
  16. NITROGLYCERIN [Concomitant]
     Dosage: UNK, PRN

REACTIONS (2)
  - IMPLANTABLE DEFIBRILLATOR INSERTION [None]
  - CARDIAC DISORDER [None]
